FAERS Safety Report 7557989-1 (Version None)
Quarter: 2011Q2

REPORT INFORMATION
  Report Type: 
  Country: None (occurrence: None)
  Receive Date: 20110525
  Receipt Date: 20110209
  Transmission Date: 20111010
  Serious: No
  Sender: FDA-Public Use
  Company Number: 323145

PATIENT
  Age: 68 Year
  Sex: Male
  Weight: 109.3 kg

DRUGS (2)
  1. VICTOZA [Suspect]
     Indication: TYPE 2 DIABETES MELLITUS
     Dosage: 1.2 MG, QD
     Dates: start: 20101215
  2. METFORMIN HCL [Concomitant]

REACTIONS (4)
  - DIARRHOEA [None]
  - RETCHING [None]
  - NAUSEA [None]
  - WEIGHT DECREASED [None]
